FAERS Safety Report 14509693 (Version 2)
Quarter: 2018Q1

REPORT INFORMATION
  Report Type: Spontaneous
  Country: US (occurrence: US)
  Receive Date: 20180209
  Receipt Date: 20180212
  Transmission Date: 20180509
  Serious: Yes (Hospitalization, Other)
  Sender: FDA-Public Use
  Company Number: US-GLAXOSMITHKLINE-US2018GSK021397

PATIENT
  Age: 24 Year
  Sex: Female

DRUGS (1)
  1. LAMICTAL [Suspect]
     Active Substance: LAMOTRIGINE

REACTIONS (21)
  - Dyspnoea [Unknown]
  - Central venous catheterisation [Unknown]
  - Alopecia [Not Recovered/Not Resolved]
  - Rash [Not Recovered/Not Resolved]
  - Visual impairment [Unknown]
  - Hyperacusis [Unknown]
  - Staphylococcal scalded skin syndrome [Unknown]
  - Photophobia [Unknown]
  - Swelling [Not Recovered/Not Resolved]
  - Adverse drug reaction [Unknown]
  - Ocular hyperaemia [Unknown]
  - Headache [Unknown]
  - Hypotension [Recovered/Resolved]
  - Meningitis bacterial [Recovering/Resolving]
  - Vision blurred [Unknown]
  - Hallucination [Unknown]
  - Meningitis aseptic [Unknown]
  - Meningitis [Unknown]
  - Malaise [Unknown]
  - Venous injury [Unknown]
  - Incoherent [Unknown]

NARRATIVE: CASE EVENT DATE: 201709
